FAERS Safety Report 5483806-X (Version None)
Quarter: 2007Q4

REPORT INFORMATION
  Report Type: 
  Country: None (occurrence: None)
  Receive Date: 20071012
  Receipt Date: 20071001
  Transmission Date: 20080405
  Serious: Yes (Hospitalization)
  Sender: FDA-Public Use
  Company Number: B0490250A

PATIENT
  Age: 54 Year
  Sex: Male

DRUGS (11)
  1. ZOFRAN [Suspect]
     Dosage: 1INJ UNKNOWN
     Route: 042
  2. CETUXIMAB [Suspect]
     Dosage: 450MG PER DAY
     Route: 042
     Dates: start: 20070704
  3. CAMPTOSAR [Suspect]
     Dosage: 320MG PER DAY
     Route: 042
     Dates: start: 20070704
  4. POLARAMINE [Suspect]
     Dosage: 1INJ PER DAY
     Route: 042
  5. ATROPINE [Suspect]
     Dosage: .25MG PER DAY
     Route: 065
  6. OXYCONTIN [Concomitant]
     Route: 065
  7. OXYNORM [Concomitant]
     Route: 065
  8. LYRICA [Concomitant]
     Route: 065
  9. LAROXYL [Concomitant]
     Route: 065
  10. DEBRIDAT [Concomitant]
     Route: 065
  11. MOVICOL [Concomitant]
     Route: 065

REACTIONS (11)
  - ANAEMIA [None]
  - CHILLS [None]
  - DEHYDRATION [None]
  - DIARRHOEA [None]
  - DISTURBANCE IN ATTENTION [None]
  - GENERAL PHYSICAL HEALTH DETERIORATION [None]
  - HYPOTENSION [None]
  - INFECTION [None]
  - NEUTROPENIA [None]
  - RENAL FAILURE ACUTE [None]
  - VOMITING [None]
